FAERS Safety Report 7532965-3 (Version None)
Quarter: 2011Q2

REPORT INFORMATION
  Report Type: 
  Country: None (occurrence: None)
  Receive Date: 20110608
  Receipt Date: 20110603
  Transmission Date: 20111010
  Serious: Yes (Other)
  Sender: FDA-Public Use
  Company Number: US-PFIZER INC-2011075045

PATIENT
  Sex: Female

DRUGS (5)
  1. PROMETHAZINE [Concomitant]
     Indication: COUGH
     Dosage: UNK
     Dates: start: 20090201
  2. FLUNISOLIDE [Concomitant]
     Dosage: UNK
     Dates: start: 20090501
  3. CHANTIX [Suspect]
     Indication: SMOKING CESSATION THERAPY
     Dosage: 30 MG, 1X/DAY
     Dates: start: 20090101, end: 20091001
  4. HYDROCODONE [Concomitant]
     Indication: PAIN
     Dosage: UNK
     Dates: start: 20090201
  5. IBUPROFEN [Concomitant]
     Indication: ANTIINFLAMMATORY THERAPY
     Dosage: UNK
     Dates: start: 20090101

REACTIONS (6)
  - DEPRESSION [None]
  - HALLUCINATION [None]
  - ABNORMAL BEHAVIOUR [None]
  - ANXIETY [None]
  - SUICIDAL IDEATION [None]
  - EMOTIONAL DISTRESS [None]
